FAERS Safety Report 4504539-X (Version None)
Quarter: 2004Q4

REPORT INFORMATION
  Report Type: 
  Country: None (occurrence: None)
  Receive Date: 20041118
  Receipt Date: 20041118
  Transmission Date: 20050328
  Serious: Yes (Life-Threatening, Hospitalization)
  Sender: FDA-Public Use
  Company Number: None

PATIENT
  Age: 67 Year
  Sex: Female
  Weight: 65 kg

DRUGS (2)
  1. CRESTOR [Suspect]
     Indication: HYPERCHOLESTEROLAEMIA
     Dosage: 20 MG, DAILY, ORAL
     Route: 048
     Dates: start: 20040301, end: 20041104
  2. TRICOR [Concomitant]

REACTIONS (3)
  - CARDIAC FAILURE [None]
  - RENAL FAILURE [None]
  - RHABDOMYOLYSIS [None]
